FAERS Safety Report 21478515 (Version 1)
Quarter: 2022Q4

REPORT INFORMATION
  Report Type: Spontaneous
  Country: US (occurrence: US)
  Receive Date: 20221019
  Receipt Date: 20221019
  Transmission Date: 20230113
  Serious: Yes (Life-Threatening, Hospitalization)
  Sender: FDA-Public Use
  Company Number: US-MYLANLABS-2022M1114516

PATIENT
  Age: 64 Year
  Sex: Male

DRUGS (4)
  1. FLUOROURACIL [Suspect]
     Active Substance: FLUOROURACIL
     Indication: Rectal cancer stage III
     Dosage: 400 MILLIGRAM/SQ. METER
     Route: 042
  2. FLUOROURACIL [Suspect]
     Active Substance: FLUOROURACIL
     Dosage: 2400 MG/M2 OVER 46 H EVERY 14 DAYS
     Route: 042
  3. LEUCOVORIN [Suspect]
     Active Substance: LEUCOVORIN
     Indication: Rectal cancer stage III
     Dosage: 400 MILLIGRAM/SQ. METER
     Route: 065
  4. OXALIPLATIN [Suspect]
     Active Substance: OXALIPLATIN
     Indication: Rectal cancer stage III
     Dosage: 85 MILLIGRAM/SQ. METER
     Route: 065

REACTIONS (7)
  - Toxic encephalopathy [Recovered/Resolved]
  - Toxicity to various agents [Recovered/Resolved]
  - Fall [Recovered/Resolved]
  - Lethargy [Recovered/Resolved]
  - Gait disturbance [Recovered/Resolved]
  - Amnesia [Recovered/Resolved]
  - Fatigue [Unknown]
